FAERS Safety Report 18995505 (Version 1)
Quarter: 2021Q1

REPORT INFORMATION
  Report Type: Report from Study
  Country: JP (occurrence: JP)
  Receive Date: 20210310
  Receipt Date: 20210310
  Transmission Date: 20210420
  Serious: Yes (Hospitalization, Other)
  Sender: FDA-Public Use
  Company Number: JP-SUN PHARMACEUTICAL INDUSTRIES LTD-2021RR-283962

PATIENT
  Age: 55 Year
  Sex: Female

DRUGS (6)
  1. METHOTREXATE. [Suspect]
     Active Substance: METHOTREXATE
     Indication: RHEUMATOID ARTHRITIS
     Dosage: UNK
     Route: 065
  2. INFLIXIMAB [Concomitant]
     Active Substance: INFLIXIMAB
     Indication: UNDIFFERENTIATED CONNECTIVE TISSUE DISEASE
  3. INFLIXIMAB [Concomitant]
     Active Substance: INFLIXIMAB
     Indication: SJOGREN^S SYNDROME
  4. METHOTREXATE. [Suspect]
     Active Substance: METHOTREXATE
     Indication: UNDIFFERENTIATED CONNECTIVE TISSUE DISEASE
  5. INFLIXIMAB [Concomitant]
     Active Substance: INFLIXIMAB
     Indication: RHEUMATOID ARTHRITIS
     Dosage: UNK
     Route: 065
  6. METHOTREXATE. [Suspect]
     Active Substance: METHOTREXATE
     Indication: SJOGREN^S SYNDROME

REACTIONS (2)
  - Epstein-Barr virus antigen positive [Unknown]
  - Lymphoproliferative disorder [Unknown]
